FAERS Safety Report 7919804-3 (Version None)
Quarter: 2011Q4

REPORT INFORMATION
  Report Type: 
  Country: None (occurrence: None)
  Receive Date: 20111117
  Receipt Date: 20111109
  Transmission Date: 20120403
  Serious: Yes (Hospitalization)
  Sender: FDA-Public Use
  Company Number: US-JNJFOC-20111011758

PATIENT
  Sex: Male
  Weight: 15.88 kg

DRUGS (2)
  1. PROPULSID [Suspect]
     Route: 048
  2. PROPULSID [Suspect]
     Indication: GASTROOESOPHAGEAL REFLUX DISEASE
     Route: 048

REACTIONS (4)
  - FOOD INTOLERANCE [None]
  - DIARRHOEA [None]
  - VOMITING [None]
  - DEHYDRATION [None]
